FAERS Safety Report 19143712 (Version 1)
Quarter: 2021Q2

REPORT INFORMATION
  Report Type: Spontaneous
  Country: CA (occurrence: CA)
  Receive Date: 20210416
  Receipt Date: 20210416
  Transmission Date: 20210717
  Serious: Yes (Other)
  Sender: FDA-Public Use
  Company Number: CA-TEVA-2021-CA-1900228

PATIENT
  Age: 71 Year
  Sex: Female

DRUGS (11)
  1. LEFLUNOMIDE. [Suspect]
     Active Substance: LEFLUNOMIDE
     Route: 065
  2. TRANDOLAPRIL. [Concomitant]
     Active Substance: TRANDOLAPRIL
     Route: 065
  3. CODEINE SULFATE. [Suspect]
     Active Substance: CODEINE SULFATE
     Route: 065
  4. ROSUVASTATIN. [Concomitant]
     Active Substance: ROSUVASTATIN
     Route: 065
  5. BISOPROLOL [Concomitant]
     Active Substance: BISOPROLOL
     Route: 065
  6. FOLIC ACID. [Concomitant]
     Active Substance: FOLIC ACID
     Route: 065
  7. PREDNISONE. [Concomitant]
     Active Substance: PREDNISONE
     Route: 065
  8. METHOTREXATE. [Suspect]
     Active Substance: METHOTREXATE
     Route: 058
  9. DESOXIMETASONE. [Concomitant]
     Active Substance: DESOXIMETASONE
     Route: 065
  10. ZOPICLONE [Concomitant]
     Active Substance: ZOPICLONE
     Route: 065
  11. ACETYLSALICYLIC ACID [Concomitant]
     Active Substance: ASPIRIN
     Route: 065

REACTIONS (7)
  - Joint swelling [Unknown]
  - Hypersensitivity [Unknown]
  - Pain [Unknown]
  - Off label use [Unknown]
  - Drug ineffective [Unknown]
  - Joint stiffness [Unknown]
  - Rheumatoid arthritis [Unknown]
